FAERS Safety Report 6966185-8 (Version None)
Quarter: 2010Q3

REPORT INFORMATION
  Report Type: 
  Country: None (occurrence: None)
  Receive Date: 20100903
  Receipt Date: 20100806
  Transmission Date: 20110219
  Serious: Yes (Hospitalization, Other)
  Sender: FDA-Public Use
  Company Number: PHEH2006US04720

PATIENT
  Sex: Male

DRUGS (45)
  1. AREDIA [Suspect]
     Dosage: 90 MG, UNK
     Route: 042
  2. ZOMETA [Suspect]
     Dosage: 4 MG, UNK
     Route: 042
  3. WARFARIN SODIUM [Concomitant]
     Dosage: 1 MG, QD
  4. CLARITIN-D [Concomitant]
  5. ALEVE [Concomitant]
     Dosage: 220 MG, QD
  6. CLINDAMYCIN [Concomitant]
     Dosage: 150 MG, Q6H
  7. CHLORHEXIDINE GLUCONATE [Concomitant]
  8. MEGACE [Concomitant]
  9. LEXAPRO [Concomitant]
  10. REGLAN [Concomitant]
  11. PREVACID [Concomitant]
  12. LISINOPRIL [Concomitant]
  13. AMBIEN [Concomitant]
  14. AUGMENTIN '125' [Concomitant]
  15. AMOXICILLIN [Concomitant]
  16. XANAX [Concomitant]
  17. HYDROCODONE [Concomitant]
  18. FENTANYL CITRATE [Concomitant]
  19. PERCOCET [Concomitant]
  20. DECADRON [Concomitant]
  21. OXYCODONE [Concomitant]
  22. ZITHROMAX [Concomitant]
  23. FAMVIR                                  /NET/ [Concomitant]
  24. NEURONTIN [Concomitant]
  25. OXYCODONE HCL AND ACETAMINOPHEN [Concomitant]
  26. ZOVIRAX [Concomitant]
  27. DIFLUCAN [Concomitant]
  28. ZYRTEC [Concomitant]
  29. CIPRO [Concomitant]
  30. PRILOSEC [Concomitant]
  31. NEXIUM [Concomitant]
  32. MEDROL [Concomitant]
  33. ERYTHROMYCIN [Concomitant]
  34. ZELNORM                                 /CAN/ [Concomitant]
  35. PROTONIX [Concomitant]
  36. VERSED [Concomitant]
  37. DEMEROL [Concomitant]
  38. ANAPROX [Concomitant]
  39. CATAPRES [Concomitant]
     Dosage: 1 DF, QW
     Route: 062
     Dates: start: 20090416
  40. NORVASC [Concomitant]
     Dosage: 5 MG, QD
     Route: 048
  41. CYMBALTA [Concomitant]
     Dosage: 30 MG, BID
     Route: 048
     Dates: start: 20090417
  42. ONDANSETRON [Concomitant]
     Dosage: 1 DF, PRN
     Route: 048
     Dates: start: 20090427
  43. KLOR-CON [Concomitant]
  44. PROMETHAZINE [Concomitant]
     Dosage: 25 MG, PRN
     Route: 048
     Dates: start: 20090430
  45. ALBUTEROL SULFATE [Concomitant]
     Dosage: 1 VIAL 4XDAY
     Dates: start: 20090520

REACTIONS (41)
  - ABDOMINAL WOUND DEHISCENCE [None]
  - ANAEMIA [None]
  - AORTIC ANEURYSM [None]
  - ARTHRALGIA [None]
  - BRONCHITIS [None]
  - CATHETER PLACEMENT [None]
  - CENTRAL VENOUS CATHETER REMOVAL [None]
  - CHRONIC OBSTRUCTIVE PULMONARY DISEASE [None]
  - COLON ADENOMA [None]
  - CONSTIPATION [None]
  - DECREASED APPETITE [None]
  - DEPRESSION [None]
  - EMOTIONAL DISTRESS [None]
  - GASTRECTOMY [None]
  - GASTRIC CANCER RECURRENT [None]
  - GASTRIC ULCER [None]
  - GASTROOESOPHAGEAL REFLUX DISEASE [None]
  - GINGIVAL PAIN [None]
  - HAEMOPHILUS BACTERAEMIA [None]
  - HAEMORRHOIDS [None]
  - IMPAIRED GASTRIC EMPTYING [None]
  - INJURY [None]
  - LUNG NEOPLASM MALIGNANT [None]
  - MOUTH ULCERATION [None]
  - NEUROPATHY PERIPHERAL [None]
  - OBSTRUCTION GASTRIC [None]
  - OESOPHAGITIS ULCERATIVE [None]
  - OSTEOARTHRITIS [None]
  - OSTEONECROSIS OF JAW [None]
  - PAIN [None]
  - PAIN IN JAW [None]
  - PANCYTOPENIA [None]
  - PERIPHERAL NERVE INJURY [None]
  - RASH ERYTHEMATOUS [None]
  - RESPIRATORY FAILURE [None]
  - SCROTAL CYST [None]
  - SEQUESTRECTOMY [None]
  - SINUSITIS [None]
  - SPINAL DECOMPRESSION [None]
  - SPINAL LAMINECTOMY [None]
  - VAGOTOMY [None]
